FAERS Safety Report 10177426 (Version 2)
Quarter: 2014Q2

REPORT INFORMATION
  Report Type: Spontaneous
  Country: DE (occurrence: DE)
  Receive Date: 20140516
  Receipt Date: 20140605
  Transmission Date: 20141212
  Serious: Yes (Hospitalization)
  Sender: FDA-Public Use
  Company Number: DE-BRISTOL-MYERS SQUIBB COMPANY-20727038

PATIENT
  Age: 80 Year
  Sex: Female
  Weight: 93 kg

DRUGS (8)
  1. ELIQUIS [Suspect]
     Indication: CEREBROVASCULAR ACCIDENT PROPHYLAXIS
     Dosage: INTERRUPTED ON MAR2014.?INTERRRUPTED ON 28-APR-2014 AND RESTARTED ON 01-MAY-2014
     Route: 048
     Dates: start: 201311
  2. CONCOR PLUS [Suspect]
     Indication: HYPERTENSION
     Dosage: 1 DF = 5/12.5 UNITS NOS.FLIM COATED TABLETS
     Route: 048
     Dates: start: 201003
  3. RAMIPRIL [Suspect]
     Indication: HYPERTENSION
     Dosage: 10 FLIM COATED TABLETS
     Route: 048
     Dates: start: 200911
  4. ALLOPURINOL [Suspect]
     Indication: HYPERURICAEMIA
     Dosage: FLIM COATED TABLETS
     Dates: start: 201005
  5. L-THYROXINE [Concomitant]
     Dosage: 1 DF = 50 UNITS NOS
  6. SYMBICORT [Concomitant]
     Dosage: 1 DF = 160/4.5 UNITS NOS.AEROSOL INHALATION
  7. SALBUTAMOL [Concomitant]
  8. ZOLPIDEM [Concomitant]
     Dosage: 1 DF= 10 UNITS NOS

REACTIONS (2)
  - Bile duct stone [Recovering/Resolving]
  - Cholelithiasis [Recovered/Resolved]
